FAERS Safety Report 8130049-7 (Version None)
Quarter: 2011Q4

REPORT INFORMATION
  Report Type: 
  Country: None (occurrence: None)
  Receive Date: 20111227
  Receipt Date: 20111101
  Transmission Date: 20120403
  Serious: No
  Sender: FDA-Public Use
  Company Number: PHEH2011US02625

PATIENT
  Age: 39 Year
  Sex: Female
  Weight: 73.5 kg

DRUGS (8)
  1. GILENYA [Suspect]
     Indication: MULTIPLE SCLEROSIS
     Dosage: 1 DF, QD, ORAL
     Route: 048
     Dates: start: 20110822
  2. SUMATRIPTAN [Concomitant]
  3. VITAMIN B COMPLEX CAP [Concomitant]
  4. NITROFURANTOIN [Concomitant]
  5. VITAMIN D [Concomitant]
  6. FAMPRIDINE (FAMPRIDINE) [Concomitant]
  7. BACLOFEN [Concomitant]
  8. MULTIVITAMINS (ASCORBIC ACID, ERGOCALCIFEROL, FOLIC ACID, NICOTINAMIDE [Concomitant]

REACTIONS (4)
  - BALANCE DISORDER [None]
  - BLOOD PRESSURE DECREASED [None]
  - GAIT DISTURBANCE [None]
  - CEREBELLAR ATAXIA [None]
